FAERS Safety Report 25142735 (Version 2)
Quarter: 2025Q2

REPORT INFORMATION
  Report Type: Spontaneous
  Country: US (occurrence: US)
  Receive Date: 20250331
  Receipt Date: 20250404
  Transmission Date: 20250717
  Serious: No
  Sender: BIOMARIN
  Company Number: US-BIOMARINAP-US-2025-164930

PATIENT

DRUGS (1)
  1. VOXZOGO [Suspect]
     Active Substance: VOSORITIDE
     Indication: Hypochondroplasia
     Dosage: 0.24 MILLIGRAM, QD
     Route: 058
     Dates: start: 20240930

REACTIONS (4)
  - Dry skin [Not Recovered/Not Resolved]
  - Dandruff [Unknown]
  - Urticaria [Unknown]
  - Off label use [Unknown]

NARRATIVE: CASE EVENT DATE: 20250301
